FAERS Safety Report 4829527-5 (Version None)
Quarter: 2005Q4

REPORT INFORMATION
  Report Type: 
  Country: None (occurrence: None)
  Receive Date: 20051116
  Receipt Date: 20030811
  Transmission Date: 20060501
  Serious: Yes (Disabling, Other)
  Sender: FDA-Public Use
  Company Number: PHNU2003DE03070

PATIENT
  Age: 54 Year
  Sex: Male
  Weight: 78 kg

DRUGS (8)
  1. LOCOL [Suspect]
     Indication: HYPERCHOLESTEROLAEMIA
     Dosage: 40 MG, QD
     Route: 048
     Dates: start: 20011023, end: 20030624
  2. CONCOR [Concomitant]
     Dosage: 2.5 MG DAILY
     Route: 048
     Dates: start: 19990901
  3. NORVASC [Concomitant]
     Dosage: 5 MG DAILY
     Route: 048
     Dates: start: 19990901
  4. ASPIRIN [Concomitant]
     Dosage: 100 MG DAILY
     Route: 048
     Dates: start: 19990901
  5. LORZAAR [Concomitant]
     Dosage: 50 MG DAILY
     Route: 048
     Dates: start: 19990901
  6. OMEPRAZOLE [Concomitant]
     Dosage: UNK, PRN
     Route: 048
     Dates: start: 20000822
  7. TAVOR [Concomitant]
     Route: 048
     Dates: start: 19960701
  8. FAKTU [Concomitant]
     Indication: HAEMORRHOIDS
     Dosage: UNK, PRN
     Route: 061

REACTIONS (22)
  - ANISOMETROPIA [None]
  - BLINDNESS DAY [None]
  - CATARACT [None]
  - CONJUNCTIVITIS [None]
  - CONSTIPATION [None]
  - DIPLOPIA [None]
  - DYSPEPSIA [None]
  - GASTROINTESTINAL PAIN [None]
  - IMPAIRED DRIVING ABILITY [None]
  - LENS DISORDER [None]
  - LENTICULAR OPACITIES [None]
  - MUSCLE SPASMS [None]
  - MYALGIA [None]
  - MYOPIA [None]
  - PHOTOPHOBIA [None]
  - RETINAL DISORDER [None]
  - RETINOPATHY HYPERTENSIVE [None]
  - SICCA SYNDROME [None]
  - SLEEP DISORDER [None]
  - VISION BLURRED [None]
  - VISUAL ACUITY REDUCED [None]
  - VISUAL DISTURBANCE [None]
